FAERS Safety Report 4723208-4 (Version None)
Quarter: 2005Q3

REPORT INFORMATION
  Report Type: 
  Country: None (occurrence: None)
  Receive Date: 20050720
  Receipt Date: 20050711
  Transmission Date: 20060218
  Serious: Yes (Life-Threatening, Hospitalization)
  Sender: FDA-Public Use
  Company Number: CHPA2005US01949

PATIENT
  Age: 51 Year
  Sex: Female
  Weight: 68.5 kg

DRUGS (1)
  1. PRIVATE LABEL STEP 1 21MG [Suspect]
     Indication: SMOKING CESSATION THERAPY
     Dosage: 21 MG, QD, TRANSDERMAL
     Route: 062
     Dates: start: 20050623, end: 20050624

REACTIONS (10)
  - ARRHYTHMIA [None]
  - BLOOD PRESSURE DIASTOLIC INCREASED [None]
  - HEADACHE [None]
  - HEART RATE INCREASED [None]
  - HYPERHIDROSIS [None]
  - MALAISE [None]
  - MYOCARDIAL INFARCTION [None]
  - PALPITATIONS [None]
  - TREATMENT NONCOMPLIANCE [None]
  - VOMITING [None]
